FAERS Safety Report 13143748 (Version 4)
Quarter: 2017Q1

REPORT INFORMATION
  Report Type: Spontaneous
  Country: JP (occurrence: JP)
  Receive Date: 20170124
  Receipt Date: 20170323
  Transmission Date: 20170428
  Serious: Yes (Hospitalization, Other)
  Sender: FDA-Public Use
  Company Number: JP-BEH-2017077398

PATIENT
  Age: 16 Year
  Sex: Male
  Weight: 61 kg

DRUGS (12)
  1. HIZENTRA [Suspect]
     Active Substance: HUMAN IMMUNOGLOBULIN G
     Indication: HYPOGAMMAGLOBULINAEMIA
     Dosage: 4 G, QW
     Route: 058
     Dates: start: 20160318, end: 20161230
  2. PREDNISOLONE. [Concomitant]
     Active Substance: PREDNISOLONE
     Dosage: 10 MG, TID
     Route: 048
  3. FAMOTIDINE. [Concomitant]
     Active Substance: FAMOTIDINE
     Indication: PROPHYLAXIS AGAINST GASTROINTESTINAL ULCER
     Dosage: 20 G, BID
     Route: 048
  4. HIZENTRA [Suspect]
     Active Substance: HUMAN IMMUNOGLOBULIN G
     Indication: SECONDARY IMMUNODEFICIENCY
     Dosage: ADMINISTRATION INTERRUPTED
     Route: 058
     Dates: start: 20161202, end: 20161202
  5. HEPARIN [Concomitant]
     Active Substance: HEPARIN SODIUM
     Dosage: 6000 IU, QD
     Route: 042
     Dates: start: 20161212, end: 20161215
  6. HIZENTRA [Suspect]
     Active Substance: HUMAN IMMUNOGLOBULIN G
     Dosage: 4 G, TOT
     Route: 058
     Dates: start: 20161230, end: 20161230
  7. PROGRAF [Concomitant]
     Active Substance: TACROLIMUS\TACROLIMUS ANHYDROUS
     Dosage: 1 MG, BID
     Route: 048
  8. BRUFEN                             /00109201/ [Concomitant]
     Active Substance: IBUPROFEN
     Indication: PAIN MANAGEMENT
     Dosage: 200 MG, TID
     Route: 048
  9. KENKETU GLOVENIN-I [Concomitant]
     Active Substance: HUMAN IMMUNOGLOBULIN G
     Indication: HYPOGAMMAGLOBULINAEMIA
     Dosage: 10 G, QD
     Route: 065
     Dates: start: 20161214, end: 20161214
  10. KENKETU GLOVENIN-I [Concomitant]
     Active Substance: HUMAN IMMUNOGLOBULIN G
     Dosage: 10 G, QD
     Route: 065
     Dates: start: 20161221, end: 20161221
  11. HIZENTRA [Suspect]
     Active Substance: HUMAN IMMUNOGLOBULIN G
     Dosage: UNK
     Route: 058
  12. URSO [Concomitant]
     Active Substance: URSODIOL
     Indication: LIVER DISORDER
     Dosage: 100 MG, TID
     Route: 048

REACTIONS (13)
  - Erythema nodosum [Recovering/Resolving]
  - Mouth ulceration [Recovering/Resolving]
  - Behcet^s syndrome [Recovering/Resolving]
  - Upper respiratory tract inflammation [Unknown]
  - Arthritis [Unknown]
  - Scrotal ulcer [Recovering/Resolving]
  - Thrombophlebitis [Recovering/Resolving]
  - Behcet^s syndrome [Unknown]
  - Erythema nodosum [Unknown]
  - Behcet^s syndrome [Recovered/Resolved]
  - Rash [Recovered/Resolved]
  - Inflammatory marker increased [Unknown]
  - Behcet^s syndrome [Unknown]

NARRATIVE: CASE EVENT DATE: 201611
